FAERS Safety Report 16438400 (Version 1)
Quarter: 2019Q2

REPORT INFORMATION
  Report Type: Spontaneous
  Country: CA (occurrence: CA)
  Receive Date: 20190617
  Receipt Date: 20190617
  Transmission Date: 20190711
  Serious: Yes (Hospitalization, Other)
  Sender: FDA-Public Use
  Company Number: CA-AUROBINDO-AUR-APL-2019-033679

PATIENT

DRUGS (3)
  1. CIPROFLOXACIN. [Suspect]
     Active Substance: CIPROFLOXACIN
     Indication: PERINEAL ABSCESS
     Dosage: UNK
     Route: 065
  2. REMICADE [Suspect]
     Active Substance: INFLIXIMAB
     Indication: CROHN^S DISEASE
     Dosage: 400 MILLIGRAM
     Route: 042
  3. METRONIDAZOLE. [Suspect]
     Active Substance: METRONIDAZOLE
     Indication: PERINEAL ABSCESS
     Dosage: UNK
     Route: 065

REACTIONS (4)
  - Mucous stools [Recovering/Resolving]
  - Perineal abscess [Recovering/Resolving]
  - Haematochezia [Recovering/Resolving]
  - Faeces soft [Recovering/Resolving]
